FAERS Safety Report 14157921 (Version 2)
Quarter: 2017Q4

REPORT INFORMATION
  Report Type: Report from Study
  Country: GB (occurrence: GB)
  Receive Date: 20171103
  Receipt Date: 20171129
  Transmission Date: 20180321
  Serious: Yes (Hospitalization, Other)
  Sender: FDA-Public Use
  Company Number: GB-ALIMERA SCIENCES LIMITED-GB-IL-2016-002776

PATIENT

DRUGS (3)
  1. TRIAMCINOLONE [Concomitant]
     Active Substance: TRIAMCINOLONE
     Indication: DIABETIC RETINAL OEDEMA
     Dosage: UNK, 4X
     Dates: start: 2005, end: 2014
  2. LUCENTIS [Concomitant]
     Active Substance: RANIBIZUMAB
     Indication: DIABETIC RETINAL OEDEMA
     Dosage: UNK, 3X
     Dates: start: 2005, end: 2014
  3. ILUVIEN [Suspect]
     Active Substance: FLUOCINOLONE ACETONIDE
     Indication: DIABETIC RETINAL OEDEMA
     Dosage: 0.25 ?G, QD, RIGHT EYE
     Route: 031
     Dates: start: 20141121

REACTIONS (3)
  - Intraocular pressure increased [Not Recovered/Not Resolved]
  - Scleral operation [Unknown]
  - Trabeculectomy [Recovered/Resolved]

NARRATIVE: CASE EVENT DATE: 20160629
